FAERS Safety Report 22064997 (Version 3)
Quarter: 2025Q2

REPORT INFORMATION
  Report Type: Report from Study
  Country: CA (occurrence: CA)
  Receive Date: 20230306
  Receipt Date: 20250403
  Transmission Date: 20250716
  Serious: Yes (Hospitalization, Disabling, Other)
  Sender: BIOCON
  Company Number: CA-MYLANLABS-2023M1023528

PATIENT

DRUGS (2)
  1. HULIO [Suspect]
     Active Substance: ADALIMUMAB-FKJP
     Indication: Ankylosing spondylitis
     Route: 058
     Dates: start: 20210813
  2. HULIO [Suspect]
     Active Substance: ADALIMUMAB-FKJP
     Route: 058
     Dates: start: 20210813

REACTIONS (3)
  - Renal colic [Unknown]
  - Disability [Unknown]
  - Product administered at inappropriate site [Unknown]
